FAERS Safety Report 5023226-5 (Version None)
Quarter: 2006Q2

REPORT INFORMATION
  Report Type: 
  Country: None (occurrence: None)
  Receive Date: 20060606
  Receipt Date: 20060519
  Transmission Date: 20061013
  Serious: No
  Sender: FDA-Public Use
  Company Number: GB200605000391

PATIENT
  Age: 46 Year
  Sex: Female

DRUGS (11)
  1. HUMULIN 70/30 [Suspect]
     Indication: DIABETES MELLITUS
     Dosage: 40 U, EACH MORNING; 30 U, EACH EVENING
     Dates: start: 20030101
  2. HUMULIN 70/30 [Suspect]
     Indication: DIABETES MELLITUS
     Dosage: 40 U, EACH MORNING; 30 U, EACH EVENING
     Dates: start: 20030101
  3. HP ERGO, TEAL/CLEAR (HUMAN ERGO, TEAL/CLEAR) PEN, REUSABLE [Concomitant]
  4. PREDNISOLONE [Concomitant]
  5. CALCIDOL (VITAMINS NOS) [Concomitant]
  6. FRUMIL (AMILORIDE HYDROCHLORIDE, FUROSEMIDE) [Concomitant]
  7. OXYBUTYNIN CHLORIDE [Concomitant]
  8. FOLIC ACID [Concomitant]
  9. CITALOPRAM HYDROBROMIDE [Concomitant]
  10. ASPIRIN [Concomitant]
  11. CALCICHEW (CALCIUM CARBONATE) [Concomitant]

REACTIONS (3)
  - DRUG INEFFECTIVE [None]
  - HYPERSOMNIA [None]
  - PHARMACEUTICAL PRODUCT COMPLAINT [None]
